FAERS Safety Report 5259439-7 (Version None)
Quarter: 2007Q1

REPORT INFORMATION
  Report Type: 
  Country: None (occurrence: None)
  Receive Date: 20070305
  Receipt Date: 20070223
  Transmission Date: 20070707
  Serious: Yes (Hospitalization)
  Sender: FDA-Public Use
  Company Number: 231448K07USA

PATIENT
  Age: 65 Year
  Sex: Female

DRUGS (5)
  1. REBIF [Suspect]
     Indication: MULTIPLE SCLEROSIS
     Dosage: 44 MCG, 3 IN 1 WEEKS, SUBCUTANEOUS
     Route: 058
     Dates: start: 20040414
  2. ASPIRIN [Suspect]
  3. VITAMIN D WITH CALCIUM (CALCIUM D) [Concomitant]
  4. MULTIVITAMIN [Concomitant]
  5. TYLENOL (COTYLENOL) [Concomitant]

REACTIONS (7)
  - ABASIA [None]
  - ACCIDENTAL OVERDOSE [None]
  - ASTHENIA [None]
  - HALLUCINATION [None]
  - HEMIPARESIS [None]
  - MENTAL DISORDER [None]
  - UNEVALUABLE EVENT [None]
